FAERS Safety Report 18293019 (Version 1)
Quarter: 2020Q3

REPORT INFORMATION
  Report Type: Spontaneous
  Country: US (occurrence: US)
  Receive Date: 20200921
  Receipt Date: 20200921
  Transmission Date: 20201103
  Serious: No
  Sender: FDA-Public Use
  Company Number: US-CATALYST PHARMACEUTICALS, INC-2020CAT00438

PATIENT
  Age: 63 Year
  Sex: Female
  Weight: 58.96 kg

DRUGS (32)
  1. ALPHA LIPOIC ACID [Concomitant]
     Active Substance: .ALPHA.-LIPOIC ACID
  2. SAM?E [Concomitant]
     Active Substance: ADEMETIONINE
  3. DICLOFENAC [Concomitant]
     Active Substance: DICLOFENAC
     Dosage: 100 MG, 2X/DAY
     Route: 048
  4. COENZYME Q?10 [Concomitant]
  5. MANGANESE [Concomitant]
     Active Substance: MANGANESE CHLORIDE
  6. STINGING NETTLE [Concomitant]
     Active Substance: HERBALS
  7. LIOTHYRONINE [Concomitant]
     Active Substance: LIOTHYRONINE
     Dosage: 10 MG, 1X/DAY IN THE MORNING
     Route: 048
  8. CURCUMIN [Concomitant]
     Active Substance: CURCUMIN
  9. IRON [Concomitant]
     Active Substance: IRON
  10. MONOLAURIN [Concomitant]
  11. FIRDAPSE [Suspect]
     Active Substance: AMIFAMPRIDINE PHOSPHATE
     Indication: MYASTHENIC SYNDROME
     Dosage: 5 MG, 3X/DAY
     Route: 048
     Dates: start: 20200730, end: 2020
  12. BIO COMPLETE 3 [Concomitant]
  13. CALCIUM [Concomitant]
     Active Substance: CALCIUM
  14. LIONS MANE [Concomitant]
  15. N?ACETYL CYSTEINE [Concomitant]
     Active Substance: ACETYLCYSTEINE
  16. FIRDAPSE [Suspect]
     Active Substance: AMIFAMPRIDINE PHOSPHATE
     Dosage: 10 MG, 3X/DAY
     Route: 048
     Dates: start: 20200816
  17. IVIG [Suspect]
     Active Substance: HUMAN IMMUNOGLOBULIN G
     Dosage: 30 G, 1X/WEEK
     Route: 042
  18. LEVOTHYROXINE. [Concomitant]
     Active Substance: LEVOTHYROXINE
     Dosage: 150 ?G, 1X/DAY IN THE MORNING
     Route: 048
  19. CLARITIN [Concomitant]
     Active Substance: LORATADINE
     Dosage: 10 MG, 1X/DAY IN THE MORNING
     Route: 048
  20. MEDROL [Concomitant]
     Active Substance: METHYLPREDNISOLONE
     Dosage: 8 MG, 1X/DAY IN THE MORNING
     Route: 048
  21. GRAPE SEED EXTRACT [Concomitant]
     Active Substance: DIETARY SUPPLEMENT\GRAPE SEED EXTRACT
  22. L?GLUTAMINE [Concomitant]
  23. MULTI?VITAMIN [Concomitant]
     Active Substance: .ALPHA.-TOCOPHEROL ACETATE, DL-\ASCORBIC ACID\CYANOCOBALAMIN\FLUORIDE ION\FOLIC ACID\NIACIN\PYRIDOXINE\RIBOFLAVIN\THIAMINE\VITAMIN A\VITAMIN D
  24. TOTAL RESTORE [Concomitant]
  25. VITAMIN C [Concomitant]
     Active Substance: ASCORBIC ACID
  26. B?COMPLEX/ B12 [Concomitant]
  27. GINKO BILOBA [Concomitant]
     Active Substance: GINKGO
  28. GLUCOSAMINE [Concomitant]
     Active Substance: GLUCOSAMINE
  29. LEMON BALM [Concomitant]
     Active Substance: HERBALS\MELISSA OFFICINALIS
  30. MSM [Concomitant]
     Active Substance: DIMETHYL SULFONE
  31. OMEGA 3 VITAMINS [Concomitant]
  32. VITAMIN D3 [Concomitant]
     Active Substance: CHOLECALCIFEROL

REACTIONS (22)
  - Lethargy [Not Recovered/Not Resolved]
  - Hypertension [Recovered/Resolved]
  - Paraesthesia oral [Recovered/Resolved]
  - Chest discomfort [Recovered/Resolved]
  - Oropharyngeal pain [Recovering/Resolving]
  - Discomfort [Recovering/Resolving]
  - Photopsia [Recovered/Resolved]
  - Feeling abnormal [Not Recovered/Not Resolved]
  - Inhibitory drug interaction [Not Recovered/Not Resolved]
  - Paraesthesia [Recovered/Resolved]
  - Headache [Recovering/Resolving]
  - Asthenia [Not Recovered/Not Resolved]
  - Cough [Recovering/Resolving]
  - Psychomotor hyperactivity [Recovering/Resolving]
  - Anxiety [Recovering/Resolving]
  - Nervousness [Recovering/Resolving]
  - Head discomfort [Not Recovered/Not Resolved]
  - Inflammation [Not Recovered/Not Resolved]
  - Insomnia [Recovered/Resolved]
  - Therapeutic product effect incomplete [Not Recovered/Not Resolved]
  - Palpitations [Recovering/Resolving]
  - Dizziness [Not Recovered/Not Resolved]

NARRATIVE: CASE EVENT DATE: 2020
